FAERS Safety Report 18899456 (Version 1)
Quarter: 2021Q1

REPORT INFORMATION
  Report Type: Spontaneous
  Country: CA (occurrence: CA)
  Receive Date: 20210216
  Receipt Date: 20210216
  Transmission Date: 20210420
  Serious: Yes (Hospitalization)
  Sender: FDA-Public Use
  Company Number: CA-ROCHE-2767170

PATIENT
  Age: 66 Year
  Sex: Female

DRUGS (2)
  1. RITUXIMAB. [Suspect]
     Active Substance: RITUXIMAB
     Route: 041
  2. RITUXIMAB. [Suspect]
     Active Substance: RITUXIMAB
     Indication: RHEUMATOID ARTHRITIS
     Route: 041

REACTIONS (7)
  - Circumstance or information capable of leading to medication error [Unknown]
  - Intentional dose omission [Unknown]
  - Blood pressure fluctuation [Unknown]
  - Contusion [Unknown]
  - Fear of injection [Unknown]
  - Poor venous access [Unknown]
  - Product use issue [Unknown]
